FAERS Safety Report 7020291-0 (Version None)
Quarter: 2010Q3

REPORT INFORMATION
  Report Type: 
  Country: None (occurrence: None)
  Receive Date: 20100929
  Receipt Date: 20100916
  Transmission Date: 20110219
  Serious: Yes (Death)
  Sender: FDA-Public Use
  Company Number: US-ELI_LILLY_AND_COMPANY-US200811002382

PATIENT
  Age: 16 Year
  Sex: Female

DRUGS (1)
  1. STRATTERA [Suspect]
     Dosage: 80 MG, UNKNOWN
     Route: 065
     Dates: start: 20071001

REACTIONS (2)
  - ACNE [None]
  - COMPLETED SUICIDE [None]
